FAERS Safety Report 4940794-X (Version None)
Quarter: 2006Q1

REPORT INFORMATION
  Report Type: 
  Country: None (occurrence: None)
  Receive Date: 20060307
  Receipt Date: 20060220
  Transmission Date: 20060701
  Serious: Yes (Other)
  Sender: FDA-Public Use
  Company Number: US-2006-003359

PATIENT
  Age: 38 Year
  Sex: Female

DRUGS (9)
  1. BETASERON [Suspect]
     Indication: MULTIPLE SCLEROSIS
     Dosage: 8 MIU, EVERY 2D, SUBCUTANEOUS
     Route: 058
     Dates: start: 20050919
  2. AMANTADINE HCL [Concomitant]
  3. CITALOPRAM (CITALOPRAM) [Concomitant]
  4. MIRAPEX [Concomitant]
  5. MULTIVITAMINS (PANTHENOL, RETINOL) [Concomitant]
  6. IRON (IRON) [Concomitant]
  7. VITAMIN B COMPLEX CAP [Concomitant]
  8. FLAXSEED OIL (LINUM USITATISSIMUM SEED OIL) [Concomitant]
  9. GLUCOTROL [Concomitant]

REACTIONS (5)
  - ANAEMIA [None]
  - MENSTRUAL DISORDER [None]
  - MULTIPLE SCLEROSIS [None]
  - VAGINAL HAEMORRHAGE [None]
  - VISION BLURRED [None]
